FAERS Safety Report 10522963 (Version 1)
Quarter: 2014Q4

REPORT INFORMATION
  Report Type: Spontaneous
  Country: GR (occurrence: GR)
  Receive Date: 20141016
  Receipt Date: 20141016
  Transmission Date: 20150528
  Serious: Yes (Other)
  Sender: FDA-Public Use
  Company Number: PHHY2014GR131744

PATIENT
  Age: 67 Year
  Sex: Female

DRUGS (3)
  1. HIDROCORTISON [Concomitant]
     Indication: RASH MACULO-PAPULAR
     Route: 042
  2. RANITIDINE [Suspect]
     Active Substance: RANITIDINE\RANITIDINE HYDROCHLORIDE
     Indication: RASH MACULO-PAPULAR
     Route: 042
  3. CIMETIDINE [Suspect]
     Active Substance: CIMETIDINE

REACTIONS (7)
  - Hypotension [Recovered/Resolved]
  - Anaphylactic reaction [Recovered/Resolved]
  - Hypersensitivity [Unknown]
  - Angioedema [Recovered/Resolved]
  - Bradycardia [Recovered/Resolved]
  - Drug hypersensitivity [Unknown]
  - Erythema [Recovered/Resolved]
